FAERS Safety Report 15310801 (Version 1)
Quarter: 2018Q3

REPORT INFORMATION
  Report Type: Spontaneous
  Country: FR (occurrence: FR)
  Receive Date: 20180823
  Receipt Date: 20180823
  Transmission Date: 20181010
  Serious: Yes (Hospitalization)
  Sender: FDA-Public Use
  Company Number: FR-JNJFOC-20180821247

PATIENT
  Age: 58 Year
  Sex: Male
  Weight: 50 kg

DRUGS (12)
  1. PREDNISOLONE. [Concomitant]
     Active Substance: PREDNISOLONE
     Route: 065
  2. HALDOL [Suspect]
     Active Substance: HALOPERIDOL
     Indication: METASTASIS
     Route: 042
     Dates: end: 20180520
  3. LAROXYL [Suspect]
     Active Substance: AMITRIPTYLINE HYDROCHLORIDE
     Indication: METASTASIS
     Route: 048
     Dates: end: 20180519
  4. ACUPAN [Suspect]
     Active Substance: NEFOPAM HYDROCHLORIDE
     Indication: METASTASIS
     Route: 042
     Dates: end: 20180520
  5. ONDANSETRON [Concomitant]
     Active Substance: ONDANSETRON
     Route: 065
  6. TAMSULOSINE [Concomitant]
     Active Substance: TAMSULOSIN HYDROCHLORIDE
     Route: 065
  7. IPRATROPIUM BROMIDE. [Concomitant]
     Active Substance: IPRATROPIUM BROMIDE
     Route: 065
  8. DUROGESIC [Suspect]
     Active Substance: FENTANYL
     Indication: METASTASIS
     Route: 062
     Dates: end: 20180520
  9. MORPHINE [Suspect]
     Active Substance: MORPHINE
     Indication: METASTASIS
     Route: 058
     Dates: end: 20180517
  10. SCOBUREN [Suspect]
     Active Substance: BUTYLSCOPOLAMINE
     Indication: METASTASIS
     Route: 042
     Dates: end: 20180517
  11. EUPANTOL [Concomitant]
     Active Substance: PANTOPRAZOLE SODIUM
     Route: 065
  12. PREVISCAN [Concomitant]
     Route: 065

REACTIONS (2)
  - Acute kidney injury [Recovering/Resolving]
  - Urinary retention [Recovering/Resolving]

NARRATIVE: CASE EVENT DATE: 20180517
